FAERS Safety Report 21334539 (Version 1)
Quarter: 2022Q3

REPORT INFORMATION
  Report Type: Spontaneous
  Country: DE (occurrence: DE)
  Receive Date: 20220914
  Receipt Date: 20220914
  Transmission Date: 20221026
  Serious: Yes (Other)
  Sender: FDA-Public Use
  Company Number: None

PATIENT
  Age: 81 Year
  Sex: Male

DRUGS (11)
  1. PREDNISONE [Suspect]
     Active Substance: PREDNISONE
     Indication: Plasma cell myeloma
     Dosage: UNK UNK, CYCLIC
     Route: 065
  2. CYTARABINE [Suspect]
     Active Substance: CYTARABINE
     Indication: Plasma cell myeloma
     Dosage: UNK
     Route: 037
  3. TRAMETINIB [Suspect]
     Active Substance: TRAMETINIB
     Indication: Plasma cell myeloma
     Dosage: 2 MG, QD
     Route: 065
  4. TRAMETINIB [Suspect]
     Active Substance: TRAMETINIB
     Indication: Targeted cancer therapy
  5. DABRAFENIB [Suspect]
     Active Substance: DABRAFENIB
     Indication: Plasma cell myeloma
     Dosage: 150 MG, UNKNOWN
     Route: 065
  6. DABRAFENIB [Suspect]
     Active Substance: DABRAFENIB
     Indication: Targeted cancer therapy
  7. BORTEZOMIB [Suspect]
     Active Substance: BORTEZOMIB
     Indication: Plasma cell myeloma
     Dosage: UNK UNK, CYCLIC
     Route: 065
  8. THIOTEPA [Suspect]
     Active Substance: THIOTEPA
     Indication: Plasma cell myeloma
     Dosage: UNK
     Route: 065
  9. METHOTREXATE [Suspect]
     Active Substance: METHOTREXATE
     Indication: Plasma cell myeloma
     Dosage: UNK, TRIPLE THERAPY
     Route: 037
  10. ALKERAN [Suspect]
     Active Substance: MELPHALAN
     Indication: Plasma cell myeloma
     Dosage: UNK UNK, CYCLIC
     Route: 065
  11. ORGADRONE [Suspect]
     Active Substance: DEXAMETHASONE SODIUM PHOSPHATE
     Indication: Plasma cell myeloma
     Dosage: TRIPLE THERAPY
     Route: 037

REACTIONS (8)
  - Plasma cell myeloma [Unknown]
  - Malignant neoplasm progression [Unknown]
  - Neutropenia [Unknown]
  - Bacterial sepsis [Unknown]
  - Plasma cell myeloma recurrent [Unknown]
  - Drug ineffective [Unknown]
  - Multiple-drug resistance [Unknown]
  - Product use in unapproved indication [Unknown]
